FAERS Safety Report 24944499 (Version 1)
Quarter: 2025Q1

REPORT INFORMATION
  Report Type: Spontaneous
  Country: FR (occurrence: FR)
  Receive Date: 20250208
  Receipt Date: 20250208
  Transmission Date: 20250408
  Serious: Yes (Death, Life-Threatening, Other)
  Sender: AMGEN
  Company Number: FR-AMGEN-FRASP2025023875

PATIENT
  Age: 66 Year

DRUGS (3)
  1. BLINATUMOMAB [Suspect]
     Active Substance: BLINATUMOMAB
     Indication: B-cell type acute leukaemia
     Dosage: 9 MICROGRAM, QD FOR 7 DAYS
     Route: 040
  2. BLINATUMOMAB [Suspect]
     Active Substance: BLINATUMOMAB
     Indication: Philadelphia chromosome positive
     Dosage: 28 MICROGRAM, QD FOR 21 DAYS
     Route: 040
  3. CYCLOPHOSPHAMIDE\CYTARABINE\DEXAMETHASONE\DOXORUBICIN\METHOTREXATE\VIN [Concomitant]
     Active Substance: CYCLOPHOSPHAMIDE\CYTARABINE\DEXAMETHASONE\DOXORUBICIN\METHOTREXATE\VINCRISTINE
     Indication: B-cell type acute leukaemia
     Route: 065

REACTIONS (3)
  - Peripheral ischaemia [Fatal]
  - Acute lymphocytic leukaemia recurrent [Unknown]
  - Central nervous system leukaemia [Unknown]
